FAERS Safety Report 7269661-6 (Version None)
Quarter: 2010Q4

REPORT INFORMATION
  Report Type: 
  Country: None (occurrence: None)
  Receive Date: 20101130
  Receipt Date: 20100520
  Transmission Date: 20110411
  Serious: Yes (Other)
  Sender: FDA-Public Use
  Company Number: 2010SP028345

PATIENT
  Sex: Female

DRUGS (1)
  1. NUVARING [Suspect]
     Dates: start: 20080423, end: 20080515

REACTIONS (1)
  - PULMONARY EMBOLISM [None]
